FAERS Safety Report 23588107 (Version 2)
Quarter: 2024Q1

REPORT INFORMATION
  Report Type: Spontaneous
  Country: US (occurrence: US)
  Receive Date: 20240301
  Receipt Date: 20240316
  Transmission Date: 20240409
  Serious: Yes (Hospitalization)
  Sender: FDA-Public Use
  Company Number: US-TEVA-VS-3161737

PATIENT
  Age: 60 Year
  Sex: Male

DRUGS (3)
  1. ACETAMINOPHEN\HYDROCODONE [Suspect]
     Active Substance: ACETAMINOPHEN\HYDROCODONE
     Indication: Pain in extremity
     Route: 065
  2. NICOTINE [Concomitant]
     Active Substance: NICOTINE
     Indication: Smoking cessation therapy
     Route: 065
  3. METHAMPHETAMINE [Suspect]
     Active Substance: METHAMPHETAMINE
     Indication: Drug abuse
     Route: 055

REACTIONS (8)
  - Vasospasm [Unknown]
  - Gangrene [Recovering/Resolving]
  - Liver injury [Unknown]
  - Soft tissue injury [Unknown]
  - Atrial flutter [Unknown]
  - Drug abuse [Unknown]
  - Cardiac failure acute [Unknown]
  - Toxicity to various agents [Unknown]
